FAERS Safety Report 18319531 (Version 6)
Quarter: 2021Q1

REPORT INFORMATION
  Report Type: Other
  Country: LB (occurrence: LB)
  Receive Date: 20200929
  Receipt Date: 20210122
  Transmission Date: 20210419
  Serious: Yes (Death, Hospitalization, Other)
  Sender: FDA-Public Use
  Company Number: LB-ROCHE-2546915

PATIENT
  Sex: Male

DRUGS (3)
  1. ENTRECTINIB [Suspect]
     Active Substance: ENTRECTINIB
     Indication: THYMOMA
     Route: 065
     Dates: start: 20200121
  2. ENTRECTINIB [Suspect]
     Active Substance: ENTRECTINIB
     Indication: CHROMOSOMAL MUTATION
     Route: 065
  3. ENTRECTINIB [Suspect]
     Active Substance: ENTRECTINIB
     Route: 065

REACTIONS (11)
  - Diarrhoea [Recovered/Resolved]
  - Death [Fatal]
  - Incorrect dose administered [Unknown]
  - Stress [Unknown]
  - Depression [Unknown]
  - Myasthenia gravis [Unknown]
  - Arthralgia [Unknown]
  - Intercepted product storage error [Unknown]
  - Product storage error [Unknown]
  - Psoriasis [Recovered/Resolved]
  - Pneumonia [Unknown]

NARRATIVE: CASE EVENT DATE: 20200422
